FAERS Safety Report 8281809-3 (Version None)
Quarter: 2012Q2

REPORT INFORMATION
  Report Type: 
  Country: None (occurrence: None)
  Receive Date: 20120413
  Receipt Date: 20120403
  Transmission Date: 20120825
  Serious: Yes (Other)
  Sender: FDA-Public Use
  Company Number: PHHY2012MX029168

PATIENT
  Sex: Female

DRUGS (2)
  1. DIOVAN HCT [Suspect]
     Indication: HYPERTENSION
     Dosage: 1 TAB. (160/25 MG) DAILY
     Dates: start: 20060101, end: 20120101
  2. PROPAFENONE HCL [Concomitant]
     Dosage: 1 DF, DAILY

REACTIONS (3)
  - FALL [None]
  - UPPER LIMB FRACTURE [None]
  - POLLAKIURIA [None]
